FAERS Safety Report 16098989 (Version 1)
Quarter: 2019Q1

REPORT INFORMATION
  Report Type: Spontaneous
  Country: US (occurrence: US)
  Receive Date: 20190321
  Receipt Date: 20190321
  Transmission Date: 20190418
  Serious: No
  Sender: FDA-Public Use
  Company Number: US-PFIZER INC-2019112070

PATIENT
  Age: 84 Year
  Sex: Female
  Weight: 72.56 kg

DRUGS (1)
  1. MORPHINE SULFATE. [Suspect]
     Active Substance: MORPHINE SULFATE
     Dosage: 15 MG, 3X/DAY (EVERY EIGHT HOURS)
     Route: 048
     Dates: start: 20170509

REACTIONS (1)
  - Drug ineffective [Not Recovered/Not Resolved]
